FAERS Safety Report 18539215 (Version 1)
Quarter: 2020Q4

REPORT INFORMATION
  Report Type: Spontaneous
  Country: US (occurrence: US)
  Receive Date: 20201123
  Receipt Date: 20201123
  Transmission Date: 20210114
  Serious: No
  Sender: FDA-Public Use
  Company Number: None

PATIENT
  Age: 62 Year
  Sex: Female

DRUGS (1)
  1. HARVONI [Suspect]
     Active Substance: LEDIPASVIR\SOFOSBUVIR
     Dosage: 90-400MG DAILY ORAL?
     Route: 048
     Dates: start: 202011, end: 202011

REACTIONS (1)
  - Heart rate abnormal [None]

NARRATIVE: CASE EVENT DATE: 20201109
